FAERS Safety Report 8266973-4 (Version None)
Quarter: 2012Q2

REPORT INFORMATION
  Report Type: 
  Country: None (occurrence: None)
  Receive Date: 20120409
  Receipt Date: 20120403
  Transmission Date: 20120825
  Serious: No
  Sender: FDA-Public Use
  Company Number: US-PFIZER INC-2012084601

PATIENT
  Sex: Female
  Weight: 61 kg

DRUGS (1)
  1. ADVIL MIGRAINE LIQUI-GELS [Suspect]
     Indication: PAIN
     Dosage: 400 MG, 1X/DAY
     Route: 048
     Dates: start: 20120402, end: 20120403

REACTIONS (1)
  - POOR QUALITY SLEEP [None]
